FAERS Safety Report 17563007 (Version 2)
Quarter: 2020Q2

REPORT INFORMATION
  Report Type: Spontaneous
  Country: US (occurrence: US)
  Receive Date: 20200319
  Receipt Date: 20200421
  Transmission Date: 20200713
  Serious: Yes (Disabling, Other)
  Sender: FDA-Public Use
  Company Number: US-REGENERON PHARMACEUTICALS, INC.-2020-24686

PATIENT

DRUGS (3)
  1. EYLEA [Suspect]
     Active Substance: AFLIBERCEPT
     Indication: MACULAR OEDEMA
     Dosage: 2 MG
     Route: 031
     Dates: start: 20190426, end: 20190426
  2. EYLEA [Suspect]
     Active Substance: AFLIBERCEPT
     Indication: RETINAL VEIN OCCLUSION
     Dosage: 2 MG
     Route: 031
     Dates: start: 20171109
  3. EYLEA [Suspect]
     Active Substance: AFLIBERCEPT
     Dosage: 2 UNK, UNK
     Route: 031
     Dates: start: 20191011, end: 20191011

REACTIONS (4)
  - Glaucoma [Not Recovered/Not Resolved]
  - Product dose omission [Unknown]
  - Blindness unilateral [Unknown]
  - Visual acuity reduced [Unknown]

NARRATIVE: CASE EVENT DATE: 201904
